FAERS Safety Report 7549561-4 (Version None)
Quarter: 2011Q2

REPORT INFORMATION
  Report Type: 
  Country: None (occurrence: None)
  Receive Date: 20110615
  Receipt Date: 20110527
  Transmission Date: 20111010
  Serious: Yes (Hospitalization)
  Sender: FDA-Public Use
  Company Number: A0866139A

PATIENT
  Age: 73 Year
  Sex: Female

DRUGS (1)
  1. AVANDIA [Suspect]
     Indication: DIABETES MELLITUS
     Dosage: 8MG TWICE PER DAY
     Dates: start: 20000101, end: 20070501

REACTIONS (6)
  - OPTIC ISCHAEMIC NEUROPATHY [None]
  - CEREBROVASCULAR ACCIDENT [None]
  - SICK SINUS SYNDROME [None]
  - CARDIAC ARREST [None]
  - ATRIOVENTRICULAR BLOCK [None]
  - ATRIAL FIBRILLATION [None]
